FAERS Safety Report 5373964-X (Version None)
Quarter: 2007Q2

REPORT INFORMATION
  Report Type: 
  Country: None (occurrence: None)
  Receive Date: 20070627
  Receipt Date: 20070614
  Transmission Date: 20071010
  Serious: Yes (Hospitalization)
  Sender: FDA-Public Use
  Company Number: E3810-01007-SPO-US

PATIENT
  Age: 85 Year
  Sex: Female

DRUGS (2)
  1. ACIPHEX [Suspect]
     Dosage: 40 MG, 2 IN 1 D, ORAL
     Route: 048
     Dates: start: 20050501, end: 20070501
  2. ARICEPT [Concomitant]

REACTIONS (6)
  - FALL [None]
  - FEMUR FRACTURE [None]
  - GAIT DISTURBANCE [None]
  - HIP FRACTURE [None]
  - PAIN [None]
  - PELVIC FRACTURE [None]
